FAERS Safety Report 15432195 (Version 4)
Quarter: 2018Q4

REPORT INFORMATION
  Report Type: Report from Study
  Country: US (occurrence: US)
  Receive Date: 20180926
  Receipt Date: 20181211
  Transmission Date: 20190204
  Serious: Yes (Hospitalization, Other)
  Sender: FDA-Public Use
  Company Number: US-ACTELION-A-NJ2018-167149

PATIENT
  Age: 38 Year
  Sex: Female
  Weight: 68 kg

DRUGS (11)
  1. REMODULIN [Suspect]
     Active Substance: TREPROSTINIL
     Indication: PULMONARY ARTERIAL HYPERTENSION
     Dosage: 0.039 MCG/KG
     Route: 058
     Dates: start: 20180925
  2. UPTRAVI [Suspect]
     Active Substance: SELEXIPAG
     Indication: PULMONARY ARTERIAL HYPERTENSION
     Dosage: 2000 MCG, BID
     Route: 048
     Dates: start: 20160202, end: 20181009
  3. UPTRAVI [Suspect]
     Active Substance: SELEXIPAG
     Dosage: 1600 MCG, QD
     Route: 048
     Dates: start: 20160202
  4. ADEMPAS [Suspect]
     Active Substance: RIOCIGUAT
     Dosage: Q 2-3 HOURS
     Route: 048
  5. ADEMPAS [Suspect]
     Active Substance: RIOCIGUAT
     Dosage: Q 6-8 HOURS
     Route: 048
  6. AMBRISENTAN [Suspect]
     Active Substance: AMBRISENTAN
     Indication: PULMONARY HYPERTENSION
     Dosage: 5 MG, QD
     Route: 065
     Dates: start: 20160613
  7. STRIBILD [Suspect]
     Active Substance: COBICISTAT\ELVITEGRAVIR\EMTRICITABINE\TENOFOVIR DISOPROXIL FUMARATE
     Indication: PRODUCT USED FOR UNKNOWN INDICATION
     Route: 065
  8. IRON [Concomitant]
     Active Substance: IRON
  9. OXYCODONE [Concomitant]
     Active Substance: OXYCODONE
  10. ADEMPAS [Suspect]
     Active Substance: RIOCIGUAT
     Indication: PRODUCT USED FOR UNKNOWN INDICATION
     Dosage: 2.5 MG, TID
     Route: 048
     Dates: start: 20151107
  11. UPTRAVI [Suspect]
     Active Substance: SELEXIPAG
     Dosage: 2400 MCG, BID
     Route: 048
     Dates: end: 20180815

REACTIONS (12)
  - Product administration error [Unknown]
  - Abdominal discomfort [Unknown]
  - Diarrhoea [Unknown]
  - Haemorrhage [Unknown]
  - Swelling [Unknown]
  - Hordeolum [Unknown]
  - Drug intolerance [Unknown]
  - Haemoptysis [Unknown]
  - Anaemia [Unknown]
  - Overdose [Unknown]
  - Product dose omission [Unknown]
  - Cardiac failure [Unknown]

NARRATIVE: CASE EVENT DATE: 201807
